FAERS Safety Report 19947047 (Version 2)
Quarter: 2021Q4

REPORT INFORMATION
  Report Type: Report from Study
  Country: DE (occurrence: DE)
  Receive Date: 20211012
  Receipt Date: 20211018
  Transmission Date: 20220303
  Serious: Yes (Hospitalization)
  Sender: FDA-Public Use
  Company Number: DE-GLAXOSMITHKLINE-DE2021208330

PATIENT
  Age: 71 Year
  Sex: Male
  Weight: 73 kg

DRUGS (5)
  1. NIRAPARIB [Suspect]
     Active Substance: NIRAPARIB
     Indication: Non-small cell lung cancer
     Dosage: DOSE AT CYCLE 1 - DAY 1
     Dates: start: 20210915, end: 20210915
  2. PEMBROLIZUMAB [Suspect]
     Active Substance: PEMBROLIZUMAB
     Indication: Non-small cell lung cancer
     Dosage: DOSE AT CYCLE 1 - DAY 1
     Route: 042
     Dates: start: 20210915, end: 20210915
  3. ATORVASTATIN [Concomitant]
     Active Substance: ATORVASTATIN
     Indication: Transaminases increased
     Dosage: 10 MG (FREQUENCY = ONCE DAILY)
     Route: 048
     Dates: start: 2021
  4. ALLOPURINOL [Concomitant]
     Active Substance: ALLOPURINOL
     Indication: Hypertension
     Dosage: 300 MG (FREQUENCY = ONCE DAILY)
     Route: 048
     Dates: start: 2021
  5. PARACODIN [Concomitant]
     Indication: Prophylaxis
     Dosage: 15 DROPS (FREQUENCY = AS NEEDED)
     Route: 048
     Dates: start: 2021

REACTIONS (1)
  - Haemoptysis [Recovered/Resolved]

NARRATIVE: CASE EVENT DATE: 20210925
